FAERS Safety Report 9795104 (Version 1)
Quarter: 2014Q1

REPORT INFORMATION
  Report Type: Spontaneous
  Country: ID (occurrence: ID)
  Receive Date: 20140103
  Receipt Date: 20140103
  Transmission Date: 20141002
  Serious: Yes (Hospitalization)
  Sender: FDA-Public Use
  Company Number: ID-ROCHE-1328841

PATIENT
  Age: 67 Year
  Sex: Male

DRUGS (7)
  1. MABTHERA [Suspect]
     Indication: NON-HODGKIN^S LYMPHOMA
     Route: 065
  2. ONDANSETRON [Suspect]
     Indication: NON-HODGKIN^S LYMPHOMA
     Route: 065
  3. DEXAMETHASONE [Suspect]
     Indication: NON-HODGKIN^S LYMPHOMA
     Route: 065
  4. CYCLOPHOSPHAMIDE [Concomitant]
     Indication: NON-HODGKIN^S LYMPHOMA
  5. PREDNISONE [Concomitant]
     Indication: NON-HODGKIN^S LYMPHOMA
  6. DOXORUBICIN HYDROCHLORIDE [Concomitant]
     Indication: NON-HODGKIN^S LYMPHOMA
  7. VINCRISTINE SULFATE [Concomitant]
     Indication: NON-HODGKIN^S LYMPHOMA

REACTIONS (2)
  - Bronchopneumonia [Unknown]
  - Hiccups [Unknown]
